FAERS Safety Report 4641514-9 (Version None)
Quarter: 2005Q2

REPORT INFORMATION
  Report Type: 
  Country: None (occurrence: None)
  Receive Date: 20050421
  Receipt Date: 20050330
  Transmission Date: 20051028
  Serious: Yes (Other)
  Sender: FDA-Public Use
  Company Number: US-JNJFOC-20050107033

PATIENT
  Sex: Female
  Weight: 49.9 kg

DRUGS (1)
  1. ORTHO EVRA [Suspect]
     Indication: CONTRACEPTION
     Dosage: THERAPY INITIATED IN 2002 OR 2003
     Route: 062

REACTIONS (1)
  - GRAND MAL CONVULSION [None]
